FAERS Safety Report 23171829 (Version 1)
Quarter: 2023Q4

REPORT INFORMATION
  Report Type: Spontaneous
  Country: US (occurrence: US)
  Receive Date: 20231110
  Receipt Date: 20231110
  Transmission Date: 20240109
  Serious: Yes (Hospitalization, Other)
  Sender: FDA-Public Use
  Company Number: US-BRISTOL-MYERS SQUIBB COMPANY-2023-155654

PATIENT
  Age: 56 Year
  Sex: Female

DRUGS (3)
  1. IPILIMUMAB [Suspect]
     Active Substance: IPILIMUMAB
     Indication: Nasal sinus cancer
     Dosage: EVERY 3 WEEKS FOR THE 6TH AND 7TH CYCLES OF TREATMENT
     Dates: start: 20170816, end: 20170908
  2. PEMBROLIZUMAB [Suspect]
     Active Substance: PEMBROLIZUMAB
     Indication: Nasal sinus cancer
     Dosage: EVERY 3 WEEKS FOR THE 6TH AND 7TH CYCLES OF TREATMENT
     Dates: start: 20170816, end: 20170908
  3. CELECOXIB [Suspect]
     Active Substance: CELECOXIB
     Indication: Nasal sinus cancer
     Dosage: 200 MG/DAY
     Dates: start: 20170816, end: 20170908

REACTIONS (6)
  - Rash pruritic [Recovering/Resolving]
  - Inappropriate antidiuretic hormone secretion [Unknown]
  - Autoimmune hepatitis [Recovered/Resolved]
  - Condition aggravated [Recovered/Resolved]
  - Meningitis aseptic [Unknown]
  - Off label use [Unknown]
